FAERS Safety Report 4457586-0 (Version None)
Quarter: 2004Q3

REPORT INFORMATION
  Report Type: 
  Country: None (occurrence: None)
  Receive Date: 20040921
  Receipt Date: 20040907
  Transmission Date: 20050211
  Serious: Yes (Death)
  Sender: FDA-Public Use
  Company Number: A0524809A

PATIENT
  Age: 72 Year
  Sex: Male

DRUGS (2)
  1. NICORETTE OTC          (NICOTINE POLACRILEX) [Suspect]
     Indication: SMOKING CESSATION THERAPY
     Dosage: TRANSBUCCAL
  2. NICODERM CQ [Suspect]
     Indication: SMOKING CESSATION THERAPY
     Dosage: TRANSDERMAL
     Route: 062

REACTIONS (3)
  - DRUG INEFFECTIVE [None]
  - LUNG NEOPLASM MALIGNANT [None]
  - MALIGNANT NEOPLASM PROGRESSION [None]
